FAERS Safety Report 7323373-9 (Version None)
Quarter: 2011Q1

REPORT INFORMATION
  Report Type: 
  Country: None (occurrence: None)
  Receive Date: 20110301
  Receipt Date: 20110217
  Transmission Date: 20110831
  Serious: Yes (Other)
  Sender: FDA-Public Use
  Company Number: US-JNJFOC-20110206332

PATIENT
  Sex: Female

DRUGS (1)
  1. DOXIL [Suspect]
     Indication: NEOPLASM MALIGNANT
     Route: 042

REACTIONS (6)
  - ABDOMINAL DISCOMFORT [None]
  - BLISTER [None]
  - CARBOHYDRATE ANTIGEN 125 INCREASED [None]
  - HERPES ZOSTER [None]
  - OEDEMA PERIPHERAL [None]
  - STOMATITIS [None]
